FAERS Safety Report 15663517 (Version 3)
Quarter: 2019Q1

REPORT INFORMATION
  Report Type: Spontaneous
  Country: DE (occurrence: DE)
  Receive Date: 20181128
  Receipt Date: 20190213
  Transmission Date: 20190417
  Serious: Yes (Other)
  Sender: FDA-Public Use
  Company Number: DE-AUROBINDO-AUR-APL-2018-053066

PATIENT

DRUGS (18)
  1. MONO EMBOLEX [Concomitant]
     Active Substance: CERTOPARIN SODIUM
     Indication: PROPHYLAXIS
     Dosage: 3000 INTERNATIONAL UNIT, ONCE A DAY
     Route: 058
     Dates: start: 20180412, end: 20180518
  2. PLIAZON [Concomitant]
     Indication: PROPHYLAXIS
     Dosage: UNK
     Route: 061
     Dates: start: 20180516, end: 20181029
  3. GLANDOMED [Concomitant]
     Indication: PROPHYLAXIS
     Dosage: UNK
     Route: 048
     Dates: start: 20180516
  4. BEPANTHEN [Concomitant]
     Indication: PARONYCHIA
     Dosage: UNK
     Route: 061
     Dates: start: 20180627, end: 20180717
  5. MACROGOL [Concomitant]
     Active Substance: POLYETHYLENE GLYCOLS
     Indication: PROPHYLAXIS
     Dosage: UNK, BID
     Route: 048
     Dates: start: 20180516
  6. FLUOROURACIL. [Suspect]
     Active Substance: FLUOROURACIL
     Dosage: 800 MILLIGRAM
     Route: 040
     Dates: start: 20180516
  7. PANITUMUMAB [Suspect]
     Active Substance: PANITUMUMAB
     Indication: COLORECTAL CANCER METASTATIC
     Dosage: 460 MILLIGRAM
     Route: 042
     Dates: start: 20180516
  8. FERROSANOL [Concomitant]
     Active Substance: FERROUS GLUCONATE
     Indication: ANAEMIA
     Dosage: 80-100 MG
     Route: 048
     Dates: start: 20180514, end: 20181030
  9. DEXPANTHENOL. [Concomitant]
     Active Substance: DEXPANTHENOL
     Indication: PARONYCHIA
     Dosage: UNK
     Route: 061
     Dates: start: 20180627, end: 20180717
  10. OXALIPLATIN. [Suspect]
     Active Substance: OXALIPLATIN
     Indication: COLORECTAL CANCER METASTATIC
     Dosage: 165 MG, UNK
     Route: 065
     Dates: start: 20180516
  11. VIGANTOL [Concomitant]
     Active Substance: CHOLECALCIFEROL
     Indication: PRODUCT USED FOR UNKNOWN INDICATION
     Dosage: 1000 INTERNATIONAL UNIT, ONCE A DAY
     Route: 048
     Dates: start: 20180518
  12. VITAMIN K [Concomitant]
     Active Substance: PHYTONADIONE
     Indication: PROPHYLAXIS
     Dosage: UNK UNK, AS NECESSARY
     Route: 061
     Dates: start: 20180516, end: 20181029
  13. DOXY M [Concomitant]
     Indication: PROPHYLAXIS
     Dosage: 100 MILLIGRAM, ONCE A DAY
     Route: 048
     Dates: start: 20180516, end: 20180517
  14. MOVICOL [Concomitant]
     Active Substance: POLYETHYLENE GLYCOL 3350\POTASSIUM CHLORIDE\SODIUM BICARBONATE\SODIUM CHLORIDE
     Indication: CONSTIPATION
     Dosage: 27.4 MILLIGRAM, ONCE A DAY (13.7 MG, BID)
     Route: 048
     Dates: start: 20180716, end: 20180727
  15. BETAISODONA [Concomitant]
     Active Substance: POVIDONE-IODINE
     Indication: PARONYCHIA
     Dosage: UNK
     Route: 061
     Dates: start: 20180718
  16. LEVOFLOXACIN. [Concomitant]
     Active Substance: LEVOFLOXACIN
     Indication: INFECTION
     Dosage: 1000 MILLIGRAM, ONCE A DAY (500 MG, BID)
     Route: 048
     Dates: start: 20180530, end: 20180605
  17. FOLINIC ACID [Suspect]
     Active Substance: LEUCOVORIN
     Indication: COLORECTAL CANCER METASTATIC
     Dosage: 780 MG, UNK
     Route: 065
     Dates: start: 20180516
  18. FLUOROURACIL. [Suspect]
     Active Substance: FLUOROURACIL
     Indication: COLORECTAL CANCER METASTATIC
     Dosage: 4650 MG, UNK
     Route: 042
     Dates: start: 20180516

REACTIONS (3)
  - Vision blurred [Unknown]
  - Dry eye [Unknown]
  - Dermatitis acneiform [Recovering/Resolving]

NARRATIVE: CASE EVENT DATE: 20181009
